FAERS Safety Report 24094613 (Version 1)
Quarter: 2024Q3

REPORT INFORMATION
  Report Type: Spontaneous
  Country: IT (occurrence: IT)
  Receive Date: 20240716
  Receipt Date: 20240716
  Transmission Date: 20241017
  Serious: Yes (Other)
  Sender: SANOFI AVENTIS
  Company Number: None

PATIENT
  Age: 57 Year
  Sex: Male

DRUGS (4)
  1. RIFAMPIN [Suspect]
     Active Substance: RIFAMPIN
     Indication: Staphylococcal infection
     Dosage: 450 MG, BID
     Route: 048
     Dates: start: 20240308, end: 20240410
  2. GENTAMICIN [Concomitant]
     Active Substance: GENTAMICIN
     Dosage: 240 MG, QD
     Route: 042
  3. VANCOMYCIN [Concomitant]
     Active Substance: VANCOMYCIN
     Indication: Staphylococcal infection
     Dosage: 1500 MG, BID
     Route: 042
  4. WARFARIN [Concomitant]
     Active Substance: WARFARIN
     Route: 048

REACTIONS (1)
  - International normalised ratio fluctuation [Recovering/Resolving]

NARRATIVE: CASE EVENT DATE: 20240327
